FAERS Safety Report 7861183-4 (Version None)
Quarter: 2011Q4

REPORT INFORMATION
  Report Type: 
  Country: None (occurrence: None)
  Receive Date: 20111027
  Receipt Date: 20111019
  Transmission Date: 20120403
  Serious: Yes (Other)
  Sender: FDA-Public Use
  Company Number: US-ASTRAZENECA-2011SE10249

PATIENT
  Age: 53 Year
  Sex: Female

DRUGS (8)
  1. ZOMIG [Suspect]
     Route: 048
  2. PRILOSEC [Suspect]
     Route: 048
  3. RHINOCORT [Suspect]
     Route: 045
  4. NEXIUM [Suspect]
     Route: 048
  5. CRESTOR [Suspect]
     Route: 048
  6. PULMICORT FLEXHALER [Suspect]
     Route: 055
  7. TOPROL-XL [Suspect]
     Route: 048
  8. ZOMIG [Suspect]
     Route: 048

REACTIONS (17)
  - SYSTEMIC LUPUS ERYTHEMATOSUS [None]
  - MOOD SWINGS [None]
  - DYSPNOEA [None]
  - MOOD ALTERED [None]
  - SINUS DISORDER [None]
  - VOMITING [None]
  - DRUG HYPERSENSITIVITY [None]
  - GASTROOESOPHAGEAL REFLUX DISEASE [None]
  - SINUSITIS [None]
  - INCREASED TENDENCY TO BRUISE [None]
  - DRUG INEFFECTIVE [None]
  - ADVERSE DRUG REACTION [None]
  - DRUG DOSE OMISSION [None]
  - HAEMORRHAGE [None]
  - MALAISE [None]
  - HAEMORRHAGIC DIATHESIS [None]
  - MIGRAINE [None]
